FAERS Safety Report 23973185 (Version 1)
Quarter: 2024Q2

REPORT INFORMATION
  Report Type: Spontaneous
  Country: US (occurrence: US)
  Receive Date: 20240613
  Receipt Date: 20240613
  Transmission Date: 20240716
  Serious: Yes (Other)
  Sender: FDA-Public Use
  Company Number: US-PFIZER INC-202400190512

PATIENT
  Age: 77 Year

DRUGS (2)
  1. TUKYSA [Suspect]
     Active Substance: TUCATINIB
     Dosage: 150 MG
  2. CYTARABINE [Suspect]
     Active Substance: CYTARABINE
     Dosage: UNK

REACTIONS (5)
  - Haemoglobin abnormal [Unknown]
  - Headache [Unknown]
  - Epistaxis [Unknown]
  - Gingival bleeding [Unknown]
  - Nausea [Unknown]
